FAERS Safety Report 8416693-8 (Version None)
Quarter: 2012Q2

REPORT INFORMATION
  Report Type: 
  Country: None (occurrence: None)
  Receive Date: 20120606
  Receipt Date: 20120604
  Transmission Date: 20120825
  Serious: Yes (Death, Hospitalization, Other)
  Sender: FDA-Public Use
  Company Number: PHHY2012BR048212

PATIENT
  Sex: Male

DRUGS (1)
  1. DIOVAN HCT [Suspect]
     Indication: HYPERTENSION
     Dosage: 1 DF (160/12.5 MG), DAILY
     Route: 048

REACTIONS (12)
  - HYDROCEPHALUS [None]
  - GASTRIC CANCER [None]
  - CHEST PAIN [None]
  - CORONARY ARTERY OCCLUSION [None]
  - MEMORY IMPAIRMENT [None]
  - HAEMOGLOBIN DECREASED [None]
  - ASTHENIA [None]
  - BALANCE DISORDER [None]
  - CATARACT [None]
  - ANGINA PECTORIS [None]
  - FALL [None]
  - WEIGHT DECREASED [None]
